FAERS Safety Report 10432245 (Version 1)
Quarter: 2014Q3

REPORT INFORMATION
  Report Type: Spontaneous
  Country: US (occurrence: None)
  Receive Date: 20140903
  Receipt Date: 20140903
  Transmission Date: 20150326
  Serious: Yes (Hospitalization)
  Sender: FDA-Public Use
  Company Number: None

PATIENT
  Age: 58 Year
  Sex: Male
  Weight: 69.8 kg

DRUGS (1)
  1. CISPLATIN. [Suspect]
     Active Substance: CISPLATIN
     Dosage: PATIENT DID NOT SHOW FOR DAY 22 ON 08.19.14 AS HAD BEEN SCHEDULED; 2ND DOSE OF CISPLATIN WAS THEREFORE GIVEN ON DAY 23 (WITHIN 24 HOURS)

REACTIONS (2)
  - Weight decreased [None]
  - Blood creatinine increased [None]

NARRATIVE: CASE EVENT DATE: 20140825
